FAERS Safety Report 4696461-3 (Version None)
Quarter: 2005Q2

REPORT INFORMATION
  Report Type: 
  Country: None (occurrence: None)
  Receive Date: 20050621
  Receipt Date: 20050614
  Transmission Date: 20051028
  Serious: Yes (Disabling)
  Sender: FDA-Public Use
  Company Number: US-MERCK-0506USA02120

PATIENT
  Age: 78 Year
  Sex: Female

DRUGS (4)
  1. ZETIA [Suspect]
     Indication: BLOOD CHOLESTEROL INCREASED
     Route: 048
     Dates: start: 20050223
  2. TRIAMTERENE [Concomitant]
     Route: 065
  3. ATENOLOL [Concomitant]
     Route: 065
  4. SYNTHROID [Concomitant]
     Route: 065

REACTIONS (2)
  - INTERVERTEBRAL DISC DISORDER [None]
  - MEDICATION ERROR [None]
